FAERS Safety Report 8561346 (Version 3)
Quarter: 2013Q4

REPORT INFORMATION
  Report Type: Spontaneous
  Country: FR (occurrence: FR)
  Receive Date: 20120514
  Receipt Date: 20131105
  Transmission Date: 20140711
  Serious: Yes (Death, Hospitalization)
  Sender: FDA-Public Use
  Company Number: FR-009507513-1205USA01891

PATIENT
  Age: 24 Year
  Sex: Male

DRUGS (6)
  1. TIENAM IV [Suspect]
     Route: 042
     Dates: start: 20120306, end: 20120309
  2. TACHOSIL [Suspect]
     Indication: HAEMORRHAGE
     Dosage: 3 UNK, UNK
     Dates: start: 20120309, end: 20120310
  3. GENTAMICIN [Suspect]
     Route: 042
     Dates: start: 20120220, end: 20120229
  4. CLAMOXYL [Suspect]
     Route: 042
     Dates: start: 20120219, end: 20120229
  5. TAZOCILLINE [Suspect]
     Route: 042
     Dates: start: 20120306, end: 20120308
  6. CEFOTAXIME SODIUM [Suspect]
     Route: 042
     Dates: start: 20120308, end: 20120312

REACTIONS (2)
  - Coagulation factor V level decreased [Recovered/Resolved]
  - Anti factor V antibody positive [Fatal]
